FAERS Safety Report 24188071 (Version 1)
Quarter: 2024Q3

REPORT INFORMATION
  Report Type: Spontaneous
  Country: FR (occurrence: FR)
  Receive Date: 20240808
  Receipt Date: 20240808
  Transmission Date: 20241016
  Serious: Yes (Hospitalization, Other)
  Sender: Haleon PLC
  Company Number: FR-AFSSAPS-LY2024000353

PATIENT
  Age: 43 Year
  Sex: Male
  Weight: 88 kg

DRUGS (3)
  1. VOLTARENE (DICLOFENAC SODIUM) [Suspect]
     Active Substance: DICLOFENAC SODIUM
     Indication: Inflammation
     Dosage: 1 DF, QD, SUSTAINED-RELEASE COATED TABLET
     Route: 048
     Dates: start: 20240219, end: 20240223
  2. FLECTOR [Suspect]
     Active Substance: DICLOFENAC EPOLAMINE
     Indication: Pain
     Dosage: 1 DF, QD
     Route: 003
     Dates: start: 20240222, end: 20240223
  3. ASPIRIN [Suspect]
     Active Substance: ASPIRIN
     Indication: Pain
     Dosage: TIME INTERVAL: 0.33333333 DAYS: 3 DF, QD (1 DOSAGE FORM, TID)
     Route: 048
     Dates: start: 20240222, end: 20240223

REACTIONS (2)
  - Dermo-hypodermitis [Recovering/Resolving]
  - Acute generalised exanthematous pustulosis [Recovered/Resolved]

NARRATIVE: CASE EVENT DATE: 20240224
